FAERS Safety Report 10540846 (Version 2)
Quarter: 2014Q4

REPORT INFORMATION
  Report Type: Spontaneous
  Country: DK (occurrence: DK)
  Receive Date: 20141024
  Receipt Date: 20141024
  Transmission Date: 20150529
  Serious: Yes (Other)
  Sender: FDA-Public Use
  Company Number: DK-SA-2014SA111557

PATIENT
  Age: 45 Year

DRUGS (1)
  1. AUBAGIO [Suspect]
     Active Substance: TERIFLUNOMIDE
     Indication: MULTIPLE SCLEROSIS
     Route: 048
     Dates: start: 20140508, end: 20140704

REACTIONS (8)
  - Iris disorder [Unknown]
  - Infection [Unknown]
  - Balance disorder [Unknown]
  - Optic neuritis [Unknown]
  - Cystitis [Recovering/Resolving]
  - Paraesthesia [Unknown]
  - Malaise [Unknown]
  - Acne [Unknown]

NARRATIVE: CASE EVENT DATE: 20140703
